FAERS Safety Report 7812824 (Version 2)
Quarter: 2017Q4

REPORT INFORMATION
  Report Type: Report from Study
  Country: JP (occurrence: JP)
  Receive Date: 20110215
  Receipt Date: 20171011
  Transmission Date: 20180321
  Serious: Yes (Life-Threatening)
  Sender: FDA-Public Use
  Company Number: JP-PFIZER INC-2011028524

PATIENT
  Age: 12 Week
  Sex: Male
  Weight: 4.1 kg

DRUGS (5)
  1. REVATIO [Suspect]
     Active Substance: SILDENAFIL CITRATE
     Dosage: 1 MG, 3X/DAY
     Route: 048
     Dates: start: 20080921, end: 20080922
  2. DORNER [Suspect]
     Active Substance: BERAPROST SODIUM
     Indication: PULMONARY HYPERTENSION
     Dosage: 15 UG, DAILY
     Route: 048
     Dates: start: 20080725, end: 20080922
  3. DORNER [Suspect]
     Active Substance: BERAPROST SODIUM
     Indication: HYPOXIA
  4. REVATIO [Suspect]
     Active Substance: SILDENAFIL CITRATE
     Indication: PULMONARY ARTERIAL HYPERTENSION
     Dosage: 0.5 MG, 3X/DAY
     Route: 048
     Dates: start: 20080916, end: 20080920
  5. PHENOBAL [Concomitant]
     Active Substance: PHENOBARBITAL
     Indication: SEDATION
     Dosage: 15 MG, DAILY
     Dates: start: 20080722, end: 20080920

REACTIONS (1)
  - Interstitial lung disease [Recovered/Resolved]

NARRATIVE: CASE EVENT DATE: 20080922
